FAERS Safety Report 20488475 (Version 1)
Quarter: 2022Q1

REPORT INFORMATION
  Report Type: Spontaneous
  Country: GB (occurrence: GB)
  Receive Date: 20220218
  Receipt Date: 20220218
  Transmission Date: 20220423
  Serious: Yes (Other)
  Sender: FDA-Public Use
  Company Number: None

PATIENT

DRUGS (2)
  1. ZOLADEX [Suspect]
     Active Substance: GOSERELIN ACETATE
     Indication: Endometriosis
     Dosage: 3.6 / 3
     Route: 058
     Dates: start: 20220203
  2. ZOLADEX [Suspect]
     Active Substance: GOSERELIN ACETATE
     Indication: Endometriosis
     Dosage: UNK
     Route: 065

REACTIONS (2)
  - Limb discomfort [Unknown]
  - Cognitive disorder [Not Recovered/Not Resolved]

NARRATIVE: CASE EVENT DATE: 20220203
